FAERS Safety Report 6233642-1 (Version None)
Quarter: 2009Q2

REPORT INFORMATION
  Report Type: 
  Country: None (occurrence: None)
  Receive Date: 20090612
  Receipt Date: 20090527
  Transmission Date: 20091009
  Serious: Yes (Other)
  Sender: FDA-Public Use
  Company Number: DSA_33718_2009

PATIENT
  Age: 48 Year
  Sex: Male

DRUGS (6)
  1. NIFEDIPINE [Suspect]
     Indication: HYPERTENSION
     Dosage: 40 MG QD, (20 MG QD)
  2. CANDESARTAN CILEXETIL [Suspect]
     Indication: HYPERTENSION
     Dosage: 8 MG QD, DF
  3. EPLERENONE [Suspect]
     Indication: HYPERTENSION
     Dosage: 50 MG QD
  4. VORICONAZOLE (VORICONAZOLE) [Suspect]
     Indication: PROPHYLAXIS
     Dosage: SEE IMAGE
  5. CYCLOSPORINE [Concomitant]
  6. METHYLPREDNISOLONE [Concomitant]

REACTIONS (2)
  - DRUG INTERACTION [None]
  - HYPOTENSION [None]
